FAERS Safety Report 8217044-4 (Version None)
Quarter: 2012Q1

REPORT INFORMATION
  Report Type: 
  Country: None (occurrence: None)
  Receive Date: 20120319
  Receipt Date: 20120312
  Transmission Date: 20120608
  Serious: No
  Sender: FDA-Public Use
  Company Number: US-BIOGENIDEC-2012BI003728

PATIENT
  Sex: Female

DRUGS (3)
  1. TYSABRI [Suspect]
     Indication: MULTIPLE SCLEROSIS
     Route: 042
     Dates: start: 20110822
  2. ZOMIG [Concomitant]
     Indication: HEADACHE
     Dates: start: 20040101
  3. NEURONTIN [Concomitant]
     Indication: NEUROPATHY PERIPHERAL
     Dates: start: 20060101

REACTIONS (7)
  - CENTRAL NERVOUS SYSTEM LESION [None]
  - INSOMNIA [None]
  - DIARRHOEA [None]
  - PARAESTHESIA [None]
  - HEADACHE [None]
  - PAIN IN EXTREMITY [None]
  - HYPERACUSIS [None]
